FAERS Safety Report 24890863 (Version 1)
Quarter: 2025Q1

REPORT INFORMATION
  Report Type: Spontaneous
  Country: GB (occurrence: GB)
  Receive Date: 20250127
  Receipt Date: 20250127
  Transmission Date: 20250409
  Serious: Yes (Other)
  Sender: TEVA
  Company Number: GB-MHRA-TPP2246745C10351630YC1737124164148

PATIENT
  Age: 22 Year
  Sex: Female
  Weight: 50 kg

DRUGS (3)
  1. DOXYCYCLINE [Suspect]
     Active Substance: DOXYCYCLINE
     Indication: Ill-defined disorder
     Route: 065
     Dates: start: 20241231
  2. COCOIS [Concomitant]
     Indication: Ill-defined disorder
     Route: 065
     Dates: start: 20230324
  3. PENICILLIN V [Concomitant]
     Active Substance: PENICILLIN V
     Indication: Ill-defined disorder
     Dosage: TAKE FOUR TABLETS TWICE A DAY
     Route: 065
     Dates: start: 20241216, end: 20241221

REACTIONS (2)
  - Rash [Recovered/Resolved]
  - Throat tightness [Recovered/Resolved]
